FAERS Safety Report 14525609 (Version 2)
Quarter: 2018Q1

REPORT INFORMATION
  Report Type: Spontaneous
  Country: FR (occurrence: FR)
  Receive Date: 20180213
  Receipt Date: 20180223
  Transmission Date: 20180509
  Serious: Yes (Death, Hospitalization, Other)
  Sender: FDA-Public Use
  Company Number: FR-SA-2018SA031301

PATIENT
  Age: 71 Year
  Sex: Male

DRUGS (22)
  1. RIFAMPICIN [Suspect]
     Active Substance: RIFAMPIN
     Route: 065
  2. BUDESONIDE/FORMOTEROL FUMARATE [Suspect]
     Active Substance: BUDESONIDE\FORMOTEROL FUMARATE
     Dosage: ROUTE: RESPIRATORY (INHALATION)
     Dates: start: 20161220, end: 20170119
  3. LOVENOX [Concomitant]
     Active Substance: ENOXAPARIN SODIUM
     Route: 065
  4. COLESTYRAMINE [Suspect]
     Active Substance: CHOLESTYRAMINE
     Route: 048
     Dates: start: 20161216, end: 20170119
  5. POLARAMINE [Concomitant]
     Active Substance: DEXCHLORPHENIRAMINE MALEATE
  6. LOPERAMIDE [Concomitant]
     Active Substance: LOPERAMIDE
     Route: 065
  7. RACECADOTRIL [Suspect]
     Active Substance: RACECADOTRIL
     Route: 048
     Dates: start: 20161209, end: 20170119
  8. KARDEGIC [Concomitant]
     Active Substance: ASPIRIN DL-LYSINE
  9. METOCLOPRAMIDE HYDROCHLORIDE. [Suspect]
     Active Substance: METOCLOPRAMIDE HYDROCHLORIDE
     Route: 048
  10. UMULINE ZINC COMPOSE [Concomitant]
     Active Substance: INSULIN HUMAN
     Dosage: INSULIN HUMAN ZINC SUSPENSION (AMORPHOUS)
     Route: 065
  11. PANTOPRAZOLE [Suspect]
     Active Substance: PANTOPRAZOLE
     Route: 042
     Dates: start: 20161225, end: 20170119
  12. TRAMADOL HYDROCHLORIDE/PARACETAMOL [Suspect]
     Active Substance: ACETAMINOPHEN\TRAMADOL HYDROCHLORIDE
     Route: 048
     Dates: start: 20161201, end: 20170119
  13. DAPTOMYCIN. [Suspect]
     Active Substance: DAPTOMYCIN
     Route: 042
     Dates: start: 20170110
  14. LINEZOLID. [Suspect]
     Active Substance: LINEZOLID
     Indication: SKIN INFECTION
     Route: 048
     Dates: start: 20161222, end: 20170110
  15. TAZOBACTAM/PIPERACILLIN [Suspect]
     Active Substance: PIPERACILLIN SODIUM\TAZOBACTAM SODIUM
     Indication: SKIN INFECTION
     Route: 042
     Dates: start: 20161204, end: 20170130
  16. NEFOPAM [Suspect]
     Active Substance: NEFOPAM
     Route: 042
     Dates: start: 20161202, end: 20170119
  17. FUROSEMIDE. [Concomitant]
     Active Substance: FUROSEMIDE
     Route: 065
  18. DIFFU K [Concomitant]
     Active Substance: POTASSIUM CHLORIDE
     Route: 065
  19. IOPROMIDE [Suspect]
     Active Substance: IOPROMIDE
     Indication: CHEST SCAN
     Route: 042
     Dates: start: 20170116, end: 20170116
  20. DUPHALAC [Concomitant]
     Active Substance: LACTULOSE
  21. VANCOMYCIN HYDROCHLORIDE. [Suspect]
     Active Substance: VANCOMYCIN HYDROCHLORIDE
     Route: 065
  22. LANTUS [Concomitant]
     Active Substance: INSULIN GLARGINE
     Route: 065

REACTIONS (18)
  - Sepsis [Unknown]
  - Dyspnoea [Unknown]
  - Eosinophilia [Not Recovered/Not Resolved]
  - Pulmonary interstitial emphysema syndrome [Unknown]
  - Hepatic encephalopathy [Unknown]
  - Eosinophilic pneumonia [Unknown]
  - Restlessness [Unknown]
  - Diffuse alveolar damage [Not Recovered/Not Resolved]
  - Acute kidney injury [Unknown]
  - Glomerular filtration rate decreased [Unknown]
  - Rectal haemorrhage [Unknown]
  - Eczema [Unknown]
  - Death [Fatal]
  - Rash maculo-papular [Not Recovered/Not Resolved]
  - Hyperammonaemia [Not Recovered/Not Resolved]
  - Generalised oedema [Unknown]
  - Alveolar lung disease [Unknown]
  - Thrombocytopenia [Unknown]

NARRATIVE: CASE EVENT DATE: 20170130
